FAERS Safety Report 8328474-4 (Version None)
Quarter: 2012Q2

REPORT INFORMATION
  Report Type: 
  Country: None (occurrence: None)
  Receive Date: 20120502
  Receipt Date: 20120502
  Transmission Date: 20120825
  Serious: Yes (Life-Threatening)
  Sender: FDA-Public Use
  Company Number: None

PATIENT
  Age: 56 Year
  Sex: Male
  Weight: 1434.2 kg

DRUGS (1)
  1. TEFLARO [Suspect]
     Indication: OSTEOMYELITIS
     Dosage: |DOSAGETEXT: 600MG||STRENGTH: 600MG||FREQ: BID||ROUTE: INTRAVENOUS DRIP|
     Route: 041
     Dates: start: 20120401, end: 20120501

REACTIONS (1)
  - NEUTROPENIA [None]
